FAERS Safety Report 9119835 (Version 1)
Quarter: 2013Q1

REPORT INFORMATION
  Report Type: Spontaneous
  Country: US (occurrence: US)
  Receive Date: 20130207
  Receipt Date: 20130207
  Transmission Date: 20140127
  Serious: No
  Sender: FDA-Public Use
  Company Number: US-009507513-1210USA001270

PATIENT
  Sex: Male
  Weight: 59.41 kg

DRUGS (2)
  1. MIRALAX [Suspect]
     Indication: PRODUCT USED FOR UNKNOWN INDICATION
     Dosage: UNK, QD
     Route: 048
     Dates: start: 2007
  2. MIRALAX [Suspect]
     Indication: MEDICAL OBSERVATION

REACTIONS (2)
  - Overdose [Unknown]
  - Incorrect drug administration duration [Unknown]
